FAERS Safety Report 9303066 (Version 5)
Quarter: 2013Q3

REPORT INFORMATION
  Report Type: Report from Study
  Country: CA (occurrence: CA)
  Receive Date: 20130522
  Receipt Date: 20130909
  Transmission Date: 20140515
  Serious: Yes (Other)
  Sender: FDA-Public Use
  Company Number: CA-PFIZER INC-2013150938

PATIENT
  Age: 47 Year
  Sex: Female
  Weight: 89.5 kg

DRUGS (4)
  1. TOFACITINIB CITRATE [Suspect]
     Indication: RHEUMATOID ARTHRITIS
     Dosage: 10 MG, TWICE DAILY
     Route: 048
     Dates: start: 20100128, end: 20130429
  2. TYLENOL EXTRA-STRENGTH [Concomitant]
     Indication: ARTHRALGIA
     Dosage: UNK
     Dates: start: 20111203
  3. NEXIUM [Concomitant]
     Indication: PROPHYLAXIS
     Dosage: UNK
     Dates: start: 20130303
  4. PREDNISONE [Concomitant]
     Indication: RHEUMATOID ARTHRITIS
     Dosage: UNK
     Dates: start: 20111231

REACTIONS (1)
  - Intraductal proliferative breast lesion [Recovered/Resolved]
